FAERS Safety Report 14933211 (Version 3)
Quarter: 2018Q4

REPORT INFORMATION
  Report Type: Spontaneous
  Country: JP (occurrence: JP)
  Receive Date: 20180524
  Receipt Date: 20181009
  Transmission Date: 20190204
  Serious: Yes (Other)
  Sender: FDA-Public Use
  Company Number: PHHY2018JP006013

PATIENT
  Sex: Female

DRUGS (2)
  1. IMUSERA [Suspect]
     Active Substance: FINGOLIMOD HYDROCHLORIDE
     Indication: MULTIPLE SCLEROSIS
     Dosage: 0.5 MG, QD
     Route: 048
     Dates: start: 201204
  2. TYSABRI [Concomitant]
     Active Substance: NATALIZUMAB
     Indication: PRODUCT USED FOR UNKNOWN INDICATION
     Dosage: UNK
     Route: 065

REACTIONS (6)
  - Anogenital warts [Unknown]
  - Bacterial vulvovaginitis [Unknown]
  - Cervical dysplasia [Unknown]
  - Multiple sclerosis [Unknown]
  - Tumefactive multiple sclerosis [Unknown]
  - Mass [Unknown]

NARRATIVE: CASE EVENT DATE: 201804
